FAERS Safety Report 14108905 (Version 3)
Quarter: 2017Q4

REPORT INFORMATION
  Report Type: Spontaneous
  Country: KR (occurrence: KR)
  Receive Date: 20171019
  Receipt Date: 20171120
  Transmission Date: 20180321
  Serious: Yes (Hospitalization, Other)
  Sender: FDA-Public Use
  Company Number: KR-009507513-1710KOR001367

PATIENT
  Age: 52 Year
  Sex: Male
  Weight: 67.8 kg

DRUGS (6)
  1. TAZOPERAN [Concomitant]
     Indication: INFECTION PROPHYLAXIS
     Dosage: 4.5 G, TID
     Route: 042
     Dates: start: 20170614, end: 20170627
  2. NOXAFIL [Suspect]
     Active Substance: POSACONAZOLE
     Indication: ANTIFUNGAL PROPHYLAXIS
     Dosage: 300 MG, TWICE A DAY
     Route: 048
     Dates: start: 20170615, end: 20170615
  3. TAZOPERAN [Concomitant]
     Indication: PNEUMONIA
     Dosage: 4.5 G, THREE TIMES DAY
     Route: 042
     Dates: start: 20170605, end: 20170613
  4. AMBISOME [Concomitant]
     Active Substance: AMPHOTERICIN B
     Indication: PNEUMONIA
     Dosage: 200 MG, ONCE DAILY
     Route: 042
     Dates: start: 20170608, end: 20170614
  5. CYTARABINE. [Concomitant]
     Active Substance: CYTARABINE
     Indication: ACUTE MYELOID LEUKAEMIA
     Dosage: 175 MG, ONCE DAILY
     Route: 042
     Dates: start: 20170608, end: 20170614
  6. NOXAFIL [Suspect]
     Active Substance: POSACONAZOLE
     Dosage: 300 MG, ONCE A DAY
     Route: 048
     Dates: start: 20170616, end: 20170629

REACTIONS (3)
  - Pneumonia fungal [Recovered/Resolved]
  - Headache [Recovered/Resolved]
  - Asthenia [Recovered/Resolved]

NARRATIVE: CASE EVENT DATE: 20170628
